FAERS Safety Report 4304036-0 (Version None)
Quarter: 2004Q1

REPORT INFORMATION
  Report Type: 
  Country: None (occurrence: None)
  Receive Date: 20040223
  Receipt Date: 20040108
  Transmission Date: 20041129
  Serious: No
  Sender: FDA-Public Use
  Company Number: PHEH2004US00705

PATIENT
  Age: 60 Year
  Sex: Male

DRUGS (2)
  1. ZELNORM [Suspect]
     Indication: IRRITABLE BOWEL SYNDROME
     Dosage: 3 MG, BID, ORAL
     Route: 048
  2. DULCOLAX [Concomitant]

REACTIONS (1)
  - URINARY RETENTION [None]
